FAERS Safety Report 5179335-3 (Version None)
Quarter: 2006Q4

REPORT INFORMATION
  Report Type: 
  Country: None (occurrence: None)
  Receive Date: 20061219
  Receipt Date: 20060913
  Transmission Date: 20070319
  Serious: Yes (Hospitalization)
  Sender: FDA-Public Use
  Company Number: JP-JPN-A200603689

PATIENT
  Age: 85 Year
  Sex: Female
  Weight: 37 kg

DRUGS (8)
  1. VALTREX [Suspect]
     Indication: HERPES ZOSTER
     Route: 048
     Dates: start: 20060904, end: 20060906
  2. RENIVACE [Concomitant]
     Indication: HYPERTENSION
     Dosage: 5MG PER DAY
     Route: 048
     Dates: end: 20060906
  3. GASTER [Concomitant]
     Dosage: 40MG PER DAY
     Route: 048
     Dates: end: 20060906
  4. MADOPAR [Concomitant]
     Indication: PARKINSONISM
     Route: 048
     Dates: end: 20060906
  5. ARICEPT [Concomitant]
     Indication: DEMENTIA
     Route: 048
     Dates: end: 20060906
  6. DOGMATYL [Concomitant]
     Indication: ANOREXIA
     Dosage: 150MG PER DAY
     Route: 048
     Dates: end: 20060906
  7. LIVALO [Concomitant]
     Dosage: 2MG PER DAY
     Route: 048
     Dates: end: 20060906
  8. ARASENA-A [Concomitant]
     Indication: HERPES ZOSTER
     Route: 061

REACTIONS (4)
  - DEPRESSED LEVEL OF CONSCIOUSNESS [None]
  - RENAL FAILURE ACUTE [None]
  - SOMNOLENCE [None]
  - VOMITING [None]
